FAERS Safety Report 16611344 (Version 1)
Quarter: 2019Q3

REPORT INFORMATION
  Report Type: Report from Study
  Country: FR (occurrence: FR)
  Receive Date: 20190722
  Receipt Date: 20190722
  Transmission Date: 20191004
  Serious: Yes (Other)
  Sender: FDA-Public Use
  Company Number: PHHY2019FR112447

PATIENT
  Age: 89 Year
  Sex: Male

DRUGS (1)
  1. ENTRESTO [Suspect]
     Active Substance: SACUBITRIL\VALSARTAN
     Indication: PRODUCT USED FOR UNKNOWN INDICATION
     Dosage: UNK
     Route: 065

REACTIONS (11)
  - Brain natriuretic peptide increased [Unknown]
  - Peripheral swelling [Unknown]
  - Dizziness [Unknown]
  - Malaise [Unknown]
  - Decreased appetite [Unknown]
  - Cardiac disorder [Unknown]
  - Balance disorder [Unknown]
  - Cough [Unknown]
  - Ejection fraction decreased [Unknown]
  - Abdominal pain upper [Unknown]
  - Depressed mood [Unknown]
